FAERS Safety Report 23726863 (Version 1)
Quarter: 2024Q2

REPORT INFORMATION
  Report Type: Spontaneous
  Country: US (occurrence: None)
  Receive Date: 20240409
  Receipt Date: 20240409
  Transmission Date: 20240716
  Serious: No
  Sender: FDA-Public Use
  Company Number: None

PATIENT
  Age: 59 Year
  Sex: Male

DRUGS (6)
  1. METFORMIN [Suspect]
     Active Substance: METFORMIN HYDROCHLORIDE
  2. OZEMPIC [Suspect]
     Active Substance: SEMAGLUTIDE
  3. INSULIN LISPRO [Suspect]
     Active Substance: INSULIN LISPRO
  4. HYDROCHLOROTHIAZIDE\LISINOPRIL [Suspect]
     Active Substance: HYDROCHLOROTHIAZIDE\LISINOPRIL
  5. ELIQUIS [Suspect]
     Active Substance: APIXABAN
  6. REPATHA [Suspect]
     Active Substance: EVOLOCUMAB

REACTIONS (1)
  - Intracranial aneurysm [None]

NARRATIVE: CASE EVENT DATE: 20240406
